APPROVED DRUG PRODUCT: PHENYLEPHRINE HYDROCHLORIDE
Active Ingredient: PHENYLEPHRINE HYDROCHLORIDE
Strength: 10MG/ML (10MG/ML)
Dosage Form/Route: SOLUTION;INTRAVENOUS
Application: A209968 | Product #001 | TE Code: AP2
Applicant: AVET LIFESCIENCES PRIVATE LTD
Approved: Feb 28, 2023 | RLD: No | RS: No | Type: RX